FAERS Safety Report 5591827-1 (Version None)
Quarter: 2008Q1

REPORT INFORMATION
  Report Type: 
  Country: None (occurrence: None)
  Receive Date: 20080115
  Receipt Date: 20080108
  Transmission Date: 20080703
  Serious: Yes (Other)
  Sender: FDA-Public Use
  Company Number: B0436531A

PATIENT
  Age: 32 Year
  Sex: Female
  Weight: 65 kg

DRUGS (4)
  1. LAMOTRIGINE [Suspect]
     Indication: SIMPLE PARTIAL SEIZURES
     Dosage: 25MG TWICE PER DAY
     Route: 048
     Dates: start: 20060511
  2. LAMOTRIGINE [Suspect]
     Dosage: 50MG TWICE PER DAY
     Route: 048
     Dates: start: 20060621, end: 20060629
  3. AMOXICILLIN [Suspect]
     Indication: DRUG USE FOR UNKNOWN INDICATION
     Route: 065
  4. EPILIM [Concomitant]
     Indication: SIMPLE PARTIAL SEIZURES
     Dosage: 200MG TWICE PER DAY
     Route: 048
     Dates: start: 20040811

REACTIONS (7)
  - ADVERSE DRUG REACTION [None]
  - ANOREXIA [None]
  - BODY TEMPERATURE INCREASED [None]
  - GAMMA-GLUTAMYLTRANSFERASE INCREASED [None]
  - HEPATIC ENZYME INCREASED [None]
  - PRURITUS [None]
  - RASH MACULO-PAPULAR [None]
